FAERS Safety Report 5956956-9 (Version None)
Quarter: 2008Q4

REPORT INFORMATION
  Report Type: 
  Country: None (occurrence: None)
  Receive Date: 20081118
  Receipt Date: 20081110
  Transmission Date: 20090506
  Serious: Yes (Hospitalization)
  Sender: FDA-Public Use
  Company Number: JP-ASTRAZENECA-2008SE04942

PATIENT
  Age: 75 Year
  Sex: Male

DRUGS (7)
  1. BLOPRESS [Suspect]
     Indication: CARDIAC FAILURE CHRONIC
     Route: 048
     Dates: start: 20070719, end: 20070801
  2. DIGOXIN KY [Concomitant]
     Indication: CARDIAC FAILURE CHRONIC
     Route: 048
  3. FAMOTIDINE [Concomitant]
     Indication: GASTRIC ULCER
     Route: 048
  4. ASPIRIN [Concomitant]
     Indication: CEREBROVASCULAR ACCIDENT PROPHYLAXIS
     Route: 048
  5. GLORIAMIN [Concomitant]
     Indication: GASTRIC ULCER
     Route: 048
  6. MAGNESIUM OXIDE [Concomitant]
     Indication: CONSTIPATION
     Route: 048
  7. VASOLAN [Concomitant]
     Indication: ATRIAL FIBRILLATION
     Route: 048

REACTIONS (1)
  - THROMBOTIC CEREBRAL INFARCTION [None]
